FAERS Safety Report 20232061 (Version 2)
Quarter: 2022Q1

REPORT INFORMATION
  Report Type: Spontaneous
  Country: FR (occurrence: FR)
  Receive Date: 20211227
  Receipt Date: 20220124
  Transmission Date: 20220424
  Serious: No
  Sender: FDA-Public Use
  Company Number: FR-LUPIN PHARMACEUTICALS INC.-2021-25408

PATIENT
  Age: 23 Year
  Sex: Female

DRUGS (2)
  1. RIFAMPIN [Suspect]
     Active Substance: RIFAMPIN
     Indication: Pruritus
     Dosage: 5 MILLIGRAM/KILOGRAM, QD
     Route: 065
  2. URSODIOL [Suspect]
     Active Substance: URSODIOL
     Indication: Cholestasis
     Dosage: 17 MILLIGRAM/KILOGRAM
     Route: 065

REACTIONS (1)
  - Exposure during pregnancy [Unknown]
